FAERS Safety Report 14655712 (Version 1)
Quarter: 2018Q1

REPORT INFORMATION
  Report Type: Spontaneous
  Country: US (occurrence: US)
  Receive Date: 20180319
  Receipt Date: 20180319
  Transmission Date: 20180509
  Serious: Yes (Other)
  Sender: FDA-Public Use
  Company Number: US-MYLANLABS-2018M1016081

PATIENT
  Sex: Female
  Weight: 66 kg

DRUGS (1)
  1. FENTANYL TRANSDERMAL SYSTEM [Suspect]
     Active Substance: FENTANYL
     Indication: BACK PAIN
     Dosage: UNK
     Route: 062
     Dates: start: 2000

REACTIONS (4)
  - Product quality issue [Unknown]
  - Drug dependence [Not Recovered/Not Resolved]
  - No adverse event [Unknown]
  - Product adhesion issue [Unknown]
